FAERS Safety Report 7994716-8 (Version None)
Quarter: 2011Q4

REPORT INFORMATION
  Report Type: 
  Country: None (occurrence: None)
  Receive Date: 20111220
  Receipt Date: 20111020
  Transmission Date: 20120403
  Serious: No
  Sender: FDA-Public Use
  Company Number: US-BAYER-2011-103563

PATIENT
  Sex: Female

DRUGS (1)
  1. AVELOX [Suspect]
     Indication: SINUSITIS
     Dosage: 400 MG, QD
     Route: 048
     Dates: start: 20110928, end: 20111003

REACTIONS (4)
  - HEADACHE [None]
  - VOMITING [None]
  - BACK PAIN [None]
  - ARTHRALGIA [None]
